FAERS Safety Report 10160932 (Version 2)
Quarter: 2014Q2

REPORT INFORMATION
  Report Type: Report from Study
  Country: CA (occurrence: CA)
  Receive Date: 20140508
  Receipt Date: 20140508
  Transmission Date: 20141212
  Serious: Yes (Hospitalization)
  Sender: FDA-Public Use
  Company Number: CA-EISAI INC-E2007-01646-SOL-CA

PATIENT
  Age: 35 Year
  Sex: Female

DRUGS (6)
  1. FYCOMPA (PERAMPANEL) [Suspect]
     Indication: EPILEPSY
     Route: 048
     Dates: end: 20140305
  2. FYCOMPA (PERAMPANEL) [Suspect]
     Route: 048
     Dates: start: 20140306, end: 20140501
  3. KEPPRA [Concomitant]
  4. VIMPAT [Concomitant]
  5. CLOBAZAM [Concomitant]
  6. ATIVAN [Concomitant]

REACTIONS (5)
  - Feeling drunk [Unknown]
  - Abnormal behaviour [Unknown]
  - Dysarthria [Unknown]
  - Gait disturbance [Unknown]
  - Aggression [Unknown]
